FAERS Safety Report 25773144 (Version 1)
Quarter: 2025Q3

REPORT INFORMATION
  Report Type: Spontaneous
  Country: EU (occurrence: EU)
  Receive Date: 20250908
  Receipt Date: 20250908
  Transmission Date: 20251021
  Serious: Yes (Hospitalization, Other)
  Sender: LEGACY PHARMACEUTICAL PACKAGING
  Company Number: EU-LEGACY PHARMA INC. SEZC-LGP202508-000247

PATIENT
  Age: 41 Year
  Sex: Female

DRUGS (2)
  1. PAROXETINE MESYLATE [Suspect]
     Active Substance: PAROXETINE MESYLATE
     Indication: Antidepressant therapy
     Dosage: 20 MILLIGRAM, DAILY
     Route: 065
  2. CLARITHROMYCIN [Concomitant]
     Active Substance: CLARITHROMYCIN
     Indication: Upper respiratory tract infection
     Route: 065

REACTIONS (3)
  - Diffuse alveolar damage [Recovered/Resolved]
  - Respiratory failure [Recovered/Resolved]
  - Product use in unapproved indication [Unknown]
